FAERS Safety Report 5599800-4 (Version None)
Quarter: 2008Q1

REPORT INFORMATION
  Report Type: 
  Country: None (occurrence: None)
  Receive Date: 20080118
  Receipt Date: 20080118
  Transmission Date: 20080703
  Serious: Yes (Life-Threatening, Hospitalization)
  Sender: FDA-Public Use
  Company Number: None

PATIENT
  Age: 32 Year
  Sex: Female
  Weight: 74.8435 kg

DRUGS (2)
  1. LEVAQUIN [Suspect]
     Indication: RENAL DISORDER
     Dosage: 1  1  IV DRIP;  1 1  PO
     Route: 041
     Dates: start: 20060601, end: 20060629
  2. LEVAQUIN [Suspect]
     Indication: RENAL DISORDER
     Dosage: 1  1  IV DRIP;  1 1  PO
     Route: 041
     Dates: start: 20060701, end: 20060728

REACTIONS (13)
  - DYSPHAGIA [None]
  - DYSPNOEA [None]
  - HEART RATE INCREASED [None]
  - LIP SWELLING [None]
  - PAIN [None]
  - PARAESTHESIA [None]
  - PHARYNGEAL HYPOAESTHESIA [None]
  - RASH [None]
  - SKIN REACTION [None]
  - SWELLING [None]
  - SWELLING FACE [None]
  - SWOLLEN TONGUE [None]
  - URTICARIA [None]
